FAERS Safety Report 10474576 (Version 1)
Quarter: 2014Q3

REPORT INFORMATION
  Report Type: Spontaneous
  Country: FR (occurrence: FR)
  Receive Date: 20140924
  Receipt Date: 20140924
  Transmission Date: 20150326
  Serious: Yes (Other)
  Sender: FDA-Public Use
  Company Number: FR-009507513-1409FRA011816

PATIENT
  Age: 23 Year
  Sex: Female
  Weight: 47 kg

DRUGS (1)
  1. NEXPLANON [Suspect]
     Active Substance: ETONOGESTREL
     Indication: CONTRACEPTION
     Dosage: UNK
     Route: 058
     Dates: start: 20140520, end: 20140624

REACTIONS (5)
  - Impaired healing [Recovered/Resolved with Sequelae]
  - Implant site scar [Recovered/Resolved with Sequelae]
  - Implant site fibrosis [Recovered/Resolved with Sequelae]
  - Complication of device insertion [Recovered/Resolved with Sequelae]
  - Lymphatic obstruction [Recovered/Resolved with Sequelae]

NARRATIVE: CASE EVENT DATE: 20140520
